FAERS Safety Report 8776674 (Version 1)
Quarter: 2012Q4

REPORT INFORMATION
  Report Type: 
  Country: ZA (occurrence: ZA)
  Receive Date: 20120911
  Receipt Date: 20120911
  Transmission Date: 20130627
  Serious: Yes (Hospitalization)
  Sender: FDA-Public Use
  Company Number: ZA-NOVOPROD-359233

PATIENT
  Sex: Female

DRUGS (2)
  1. VICTOZA [Suspect]
     Indication: GLUCOSE TOLERANCE IMPAIRED
     Dosage: 1.2 mg, qd
     Route: 065
  2. VICTOZA [Suspect]
     Indication: OVERWEIGHT

REACTIONS (1)
  - Cholelithiasis [Recovered/Resolved]
